FAERS Safety Report 6518688-8 (Version None)
Quarter: 2009Q4

REPORT INFORMATION
  Report Type: 
  Country: None (occurrence: None)
  Receive Date: 20091228
  Receipt Date: 20091222
  Transmission Date: 20100525
  Serious: Yes (Other)
  Sender: FDA-Public Use
  Company Number: GB-ROCHE-676073

PATIENT
  Age: 16 Year
  Weight: 61.9 kg

DRUGS (3)
  1. CLONAZEPAM [Suspect]
     Indication: AGITATION
     Route: 065
     Dates: start: 20091211, end: 20091211
  2. OLANZAPINE [Suspect]
     Indication: AGITATION
     Route: 065
     Dates: start: 20091211, end: 20091211
  3. RESPERIDON [Concomitant]

REACTIONS (7)
  - ABDOMINAL PAIN UPPER [None]
  - HALLUCINATION, VISUAL [None]
  - HEADACHE [None]
  - NAUSEA [None]
  - OXYGEN SATURATION DECREASED [None]
  - SEDATION [None]
  - VOMITING [None]
